FAERS Safety Report 12401278 (Version 1)
Quarter: 2016Q2

REPORT INFORMATION
  Report Type: Spontaneous
  Country: US (occurrence: US)
  Receive Date: 20160525
  Receipt Date: 20160525
  Transmission Date: 20160815
  Serious: Yes (Other)
  Sender: FDA-Public Use
  Company Number: US-AMGEN-USASP2016065258

PATIENT
  Age: 66 Year
  Sex: Female

DRUGS (1)
  1. PROLIA [Suspect]
     Active Substance: DENOSUMAB
     Indication: PRODUCT USED FOR UNKNOWN INDICATION
     Dosage: UNK
     Route: 065
     Dates: start: 201511

REACTIONS (6)
  - Infection [Unknown]
  - Uterine cancer [Unknown]
  - White blood cell count decreased [Unknown]
  - Malignant peritoneal neoplasm [Unknown]
  - Ovarian cancer [Unknown]
  - Fallopian tube cancer [Unknown]

NARRATIVE: CASE EVENT DATE: 201602
